FAERS Safety Report 4341058-8 (Version None)
Quarter: 2004Q2

REPORT INFORMATION
  Report Type: 
  Country: None (occurrence: None)
  Receive Date: 20040419
  Receipt Date: 20011025
  Transmission Date: 20050107
  Serious: Yes (Hospitalization, Disabling)
  Sender: FDA-Public Use
  Company Number: US-MERCK-01104510

PATIENT
  Age: 64 Year
  Sex: Male
  Weight: 89 kg

DRUGS (12)
  1. [THERAPY UNSPECIFIED] [Concomitant]
     Route: 065
  2. [THERAPY UNSPECIFIED] [Concomitant]
     Route: 065
  3. ASPIRIN [Concomitant]
     Route: 065
  4. LIPITOR [Concomitant]
     Indication: LIPIDS ABNORMAL
     Route: 065
  5. PEPTO-BISMOL [Concomitant]
     Route: 065
     Dates: start: 20001102
  6. CHONDROITIN SULFATE SODIUM AND GLUCOSAMINE HYDROCHLORIDE [Concomitant]
     Route: 065
  7. VASERETIC [Concomitant]
     Indication: BLOOD PRESSURE
     Route: 048
     Dates: end: 20001107
  8. NEURONTIN [Concomitant]
     Indication: NEUROPATHY
     Route: 065
  9. PREVACID [Concomitant]
     Indication: GASTRIC DISORDER
     Route: 065
  10. INDERAL [Concomitant]
     Indication: BLOOD PRESSURE ABNORMAL
     Route: 065
  11. VIOXX [Suspect]
     Indication: OSTEOARTHRITIS
     Route: 048
     Dates: start: 20000524, end: 20001107
  12. VITAMINS (UNSPECIFIED) [Concomitant]
     Route: 065

REACTIONS (15)
  - ACUTE PRERENAL FAILURE [None]
  - ANAEMIA [None]
  - ARTHRITIS [None]
  - ECZEMA [None]
  - GASTRITIS [None]
  - HYPERTENSION [None]
  - MYOCARDIAL INFARCTION [None]
  - OESOPHAGITIS [None]
  - PEPTIC ULCER [None]
  - SINUS TACHYCARDIA [None]
  - STRESS SYMPTOMS [None]
  - TACHYCARDIA [None]
  - TORSADE DE POINTES [None]
  - UPPER GASTROINTESTINAL HAEMORRHAGE [None]
  - VENTRICULAR ARRHYTHMIA [None]
